FAERS Safety Report 9618650 (Version 1)
Quarter: 2013Q4

REPORT INFORMATION
  Report Type: Spontaneous
  Country: US (occurrence: US)
  Receive Date: 20131014
  Receipt Date: 20131014
  Transmission Date: 20140711
  Serious: No
  Sender: FDA-Public Use
  Company Number: US-PFIZER INC-2013293466

PATIENT
  Age: 61 Year
  Sex: Female
  Weight: 96.6 kg

DRUGS (2)
  1. CHANTIX [Suspect]
     Indication: SMOKING CESSATION THERAPY
     Dosage: 0.5 MG, UNK
     Dates: start: 201304, end: 2013
  2. CHANTIX [Suspect]
     Dosage: 1 MG, UNK
     Dates: start: 2013, end: 2013

REACTIONS (2)
  - Drug intolerance [Unknown]
  - Abdominal distension [Recovered/Resolved]
